FAERS Safety Report 11335501 (Version 1)
Quarter: 2015Q3

REPORT INFORMATION
  Report Type: Spontaneous
  Country: US (occurrence: US)
  Receive Date: 20150804
  Receipt Date: 20150804
  Transmission Date: 20151125
  Serious: No
  Sender: FDA-Public Use
  Company Number: US-009507513-1507USA011948

PATIENT
  Age: 69 Year
  Sex: Female

DRUGS (2)
  1. EMEND [Suspect]
     Active Substance: APREPITANT
     Dosage: 80 MG ON DAYS 2 AND 3
     Route: 048
     Dates: start: 2012
  2. EMEND [Suspect]
     Active Substance: APREPITANT
     Dosage: 125 MG THE FIRST DAY
     Route: 048
     Dates: start: 2012

REACTIONS (2)
  - Pain [Not Recovered/Not Resolved]
  - Drug dose omission [Unknown]

NARRATIVE: CASE EVENT DATE: 20150619
